FAERS Safety Report 9912317 (Version 1)
Quarter: 2014Q1

REPORT INFORMATION
  Report Type: Spontaneous
  Country: US (occurrence: US)
  Receive Date: 20140220
  Receipt Date: 20140220
  Transmission Date: 20141002
  Serious: No
  Sender: FDA-Public Use
  Company Number: US-BIOGENIDEC-2014BI016525

PATIENT
  Sex: Female

DRUGS (6)
  1. AVONEX [Suspect]
     Indication: MULTIPLE SCLEROSIS
     Route: 030
  2. COPAXONE [Concomitant]
  3. GABAPENTIN [Concomitant]
  4. IBUPROFEN [Concomitant]
  5. LEVOTHYROXINE SODIUM [Concomitant]
  6. PHENYTOIN SODIUM EXTENDED [Concomitant]

REACTIONS (3)
  - Adverse event [Unknown]
  - Headache [Unknown]
  - Malaise [Unknown]
